FAERS Safety Report 6868556-7 (Version None)
Quarter: 2010Q3

REPORT INFORMATION
  Report Type: 
  Country: None (occurrence: None)
  Receive Date: 20100722
  Receipt Date: 20080811
  Transmission Date: 20110219
  Serious: No
  Sender: FDA-Public Use
  Company Number: US-PFIZER INC-2008045482

PATIENT
  Sex: Female
  Weight: 94.1 kg

DRUGS (19)
  1. CHANTIX [Suspect]
     Indication: SMOKING CESSATION THERAPY
     Route: 048
     Dates: start: 20080514, end: 20080524
  2. METHADONE HCL [Concomitant]
  3. OXYCET [Concomitant]
  4. FOLATE [Concomitant]
  5. WARFARIN SODIUM [Concomitant]
  6. LASIX [Concomitant]
  7. PLAVIX [Concomitant]
  8. COREG [Concomitant]
  9. LISINOPRIL [Concomitant]
  10. ZETIA [Concomitant]
  11. NITROGLYCERIN [Concomitant]
  12. LEVOTHYROXINE SODIUM [Concomitant]
  13. LANTUS [Concomitant]
  14. HUMALOG [Concomitant]
  15. ACETYLSALICYLIC ACID [Concomitant]
  16. LIPITOR [Concomitant]
  17. POTASSIUM CHLORIDE [Concomitant]
  18. IMDUR [Concomitant]
  19. ALDACTONE [Concomitant]

REACTIONS (4)
  - FATIGUE [None]
  - FEELING ABNORMAL [None]
  - HYPERPHAGIA [None]
  - NAUSEA [None]
